FAERS Safety Report 11532651 (Version 3)
Quarter: 2017Q3

REPORT INFORMATION
  Report Type: Spontaneous
  Country: ES (occurrence: ES)
  Receive Date: 20150921
  Receipt Date: 20170912
  Transmission Date: 20171127
  Serious: Yes (Death, Hospitalization)
  Sender: FDA-Public Use
  Company Number: ES-TEVA-595498ISR

PATIENT
  Age: 75 Year
  Sex: Female

DRUGS (2)
  1. CAPECITABINE. [Suspect]
     Active Substance: CAPECITABINE
     Indication: ADENOCARCINOMA OF COLON
     Dosage: 1000 MG/M2 EVERY 12 H ON DAYS 1-14?
     Route: 065
  2. OXALIPLATIN. [Concomitant]
     Active Substance: OXALIPLATIN
     Indication: ADENOCARCINOMA OF COLON
     Dosage: 130 MG/M2 IN 2 H ON DAY 1
     Route: 065

REACTIONS (9)
  - Febrile neutropenia [Unknown]
  - Staphylococcal bacteraemia [Unknown]
  - Nausea [Unknown]
  - Escherichia urinary tract infection [Unknown]
  - Toxicity to various agents [Fatal]
  - Vomiting [Unknown]
  - Gastrointestinal toxicity [Unknown]
  - Haematotoxicity [Unknown]
  - Respiratory tract infection [Unknown]
